FAERS Safety Report 4289102-0 (Version None)
Quarter: 2004Q1

REPORT INFORMATION
  Report Type: 
  Country: None (occurrence: None)
  Receive Date: 20040126
  Receipt Date: 20030905
  Transmission Date: 20041129
  Serious: No
  Sender: FDA-Public Use
  Company Number: USA030432953

PATIENT
  Age: 81 Year
  Sex: Female
  Weight: 49 kg

DRUGS (2)
  1. FORTEO [Suspect]
     Indication: OSTEOPOROSIS
     Dosage: 20 UG/DAY
     Dates: start: 20030101, end: 20030715
  2. PLAVIX [Concomitant]

REACTIONS (5)
  - BALANCE DISORDER [None]
  - HAIR DISORDER [None]
  - HYPERTENSION [None]
  - LARYNGITIS [None]
  - NERVOUS SYSTEM DISORDER [None]
